FAERS Safety Report 10440348 (Version 3)
Quarter: 2014Q4

REPORT INFORMATION
  Report Type: Report from Study
  Country: US (occurrence: US)
  Receive Date: 20140909
  Receipt Date: 20141007
  Transmission Date: 20150528
  Serious: No
  Sender: FDA-Public Use
  Company Number: US-AMGEN-USASP2014066432

PATIENT
  Age: 62 Year
  Sex: Male

DRUGS (1)
  1. ENBREL [Suspect]
     Active Substance: ETANERCEPT
     Indication: ANKYLOSING SPONDYLITIS
     Dosage: 50 MG, QWK
     Route: 058
     Dates: start: 20140812

REACTIONS (7)
  - Injection site rash [Unknown]
  - Dermatitis contact [Not Recovered/Not Resolved]
  - Injection site erythema [Not Recovered/Not Resolved]
  - Erythema [Recovered/Resolved]
  - Nasal ulcer [Recovered/Resolved]
  - Rhinalgia [Recovered/Resolved]
  - Injection site pruritus [Not Recovered/Not Resolved]

NARRATIVE: CASE EVENT DATE: 2014
